FAERS Safety Report 8146523-3 (Version None)
Quarter: 2012Q1

REPORT INFORMATION
  Report Type: 
  Country: None (occurrence: None)
  Receive Date: 20120217
  Receipt Date: 20110724
  Transmission Date: 20120608
  Serious: No
  Sender: FDA-Public Use
  Company Number: US-ABBOTT-11P-163-0840760-00

PATIENT
  Sex: Male

DRUGS (3)
  1. SIMCOR [Suspect]
     Dates: start: 20110719
  2. ASPIRIN [Concomitant]
     Indication: PRODUCT USED FOR UNKNOWN INDICATION
  3. SIMCOR [Suspect]
     Indication: PRODUCT USED FOR UNKNOWN INDICATION
     Dosage: 500/40MG Q HS
     Dates: start: 20110601

REACTIONS (3)
  - FLUSHING [None]
  - BURNING SENSATION [None]
  - RASH PRURITIC [None]
